FAERS Safety Report 22385605 (Version 1)
Quarter: 2023Q2

REPORT INFORMATION
  Report Type: Report from Study
  Country: CA (occurrence: CA)
  Receive Date: 20230530
  Receipt Date: 20230530
  Transmission Date: 20230721
  Serious: Yes (Other)
  Sender: FDA-Public Use
  Company Number: CA-TAKEDA-2023TUS052947

PATIENT
  Age: 36 Year
  Sex: Female

DRUGS (1)
  1. LISDEXAMFETAMINE DIMESYLATE [Suspect]
     Active Substance: LISDEXAMFETAMINE DIMESYLATE
     Indication: Attention deficit hyperactivity disorder
     Dosage: 60 MILLIGRAM, QD
     Route: 048

REACTIONS (6)
  - Jaw fracture [Unknown]
  - Osteomyelitis [Unknown]
  - Head injury [Unknown]
  - Ear haemorrhage [Unknown]
  - Tympanic membrane perforation [Unknown]
  - Anxiety [Unknown]
